FAERS Safety Report 20255990 (Version 2)
Quarter: 2022Q1

REPORT INFORMATION
  Report Type: Spontaneous
  Country: PT (occurrence: PT)
  Receive Date: 20211230
  Receipt Date: 20220107
  Transmission Date: 20220424
  Serious: Yes (Other)
  Sender: FDA-Public Use
  Company Number: PT-BAYER-2021A272729

PATIENT
  Age: 30 Year
  Sex: Female

DRUGS (1)
  1. NAPROXEN SODIUM [Suspect]
     Active Substance: NAPROXEN SODIUM
     Indication: Erythema nodosum
     Dosage: 500 MG, BID

REACTIONS (10)
  - Sarcoidosis [None]
  - Pulmonary mass [None]
  - Asthenia [None]
  - Paraesthesia [None]
  - Dyspnoea exertional [None]
  - Arthralgia [None]
  - Myalgia [None]
  - Angiotensin converting enzyme increased [None]
  - Lung diffusion test decreased [None]
  - Product use in unapproved indication [None]
